FAERS Safety Report 24554689 (Version 2)
Quarter: 2024Q4

REPORT INFORMATION
  Report Type: Spontaneous
  Country: FR (occurrence: FR)
  Receive Date: 20241028
  Receipt Date: 20241109
  Transmission Date: 20250115
  Serious: Yes (Hospitalization, Other)
  Sender: ZYDUS PHARM
  Company Number: None

PATIENT

DRUGS (8)
  1. ACETAMINOPHEN [Suspect]
     Active Substance: ACETAMINOPHEN
     Indication: Product used for unknown indication
     Dosage: 16 TABLETS OF 500 MG
     Route: 065
  2. METFORMIN\SITAGLIPTIN [Suspect]
     Active Substance: METFORMIN\SITAGLIPTIN
     Indication: Product used for unknown indication
     Dosage: 15 TABLETS IN 36 HOURS OF 50 MG/1000 MG
     Route: 065
  3. DESLORATADINE [Suspect]
     Active Substance: DESLORATADINE
     Indication: Product used for unknown indication
     Dosage: D 15 TABLETS OF 5 MG DESLORATADINE 36 HOURS BEFORE
     Route: 065
  4. PANTOPRAZOLE [Suspect]
     Active Substance: PANTOPRAZOLE
     Indication: Product used for unknown indication
     Dosage: 14 TABLETS IN 36 HOURS
     Route: 065
  5. AMLODIPINE BESYLATE\PERINDOPRIL ARGININE [Suspect]
     Active Substance: AMLODIPINE BESYLATE\PERINDOPRIL ARGININE
     Indication: Product used for unknown indication
     Dosage: 30 TABLET IN 36 HOURS, 30 TABLETS OF 10 MG/10 MG
     Route: 065
  6. DICLOFENAC SODIUM [Suspect]
     Active Substance: DICLOFENAC SODIUM
     Indication: Product used for unknown indication
     Dosage: 20 TABLETS OF 50 MG DICLOFENAC SODIUM
     Route: 065
  7. KETOPROFEN LYSINE [Suspect]
     Active Substance: KETOPROFEN LYSINE
     Indication: Product used for unknown indication
     Dosage: 16 TABLETS OF 100 MG
     Route: 065
  8. ACETAMINOPHEN\ASCORBIC ACID\PHENIRAMINE MALEATE [Suspect]
     Active Substance: ACETAMINOPHEN\ASCORBIC ACID\PHENIRAMINE MALEATE
     Indication: Product used for unknown indication
     Dosage: 6 TABLETS IN 36 HOURS
     Route: 065

REACTIONS (12)
  - Toxicity to various agents [Recovered/Resolved]
  - Electrocardiogram T wave peaked [Recovered/Resolved]
  - Acute kidney injury [Recovered/Resolved]
  - Heart rate increased [Recovered/Resolved]
  - Hyperleukocytosis [Recovered/Resolved]
  - Hyperkalaemia [Recovered/Resolved]
  - Livedo reticularis [Recovered/Resolved]
  - Prothrombin time abnormal [Recovered/Resolved]
  - Hypotension [Recovered/Resolved]
  - Abdominal pain [Recovered/Resolved]
  - Vomiting [Recovered/Resolved]
  - Intentional overdose [Recovered/Resolved]
